FAERS Safety Report 5703151-4 (Version None)
Quarter: 2008Q2

REPORT INFORMATION
  Report Type: 
  Country: None (occurrence: None)
  Receive Date: 20080411
  Receipt Date: 20080401
  Transmission Date: 20081010
  Serious: Yes (Other)
  Sender: FDA-Public Use
  Company Number: US-PFIZER INC-2007106371

PATIENT
  Sex: Female
  Weight: 88.9 kg

DRUGS (3)
  1. CHANTIX [Suspect]
     Dates: start: 20071126, end: 20080101
  2. TOPROL-XL [Concomitant]
  3. LORTAB [Concomitant]

REACTIONS (13)
  - ABNORMAL DREAMS [None]
  - ANGER [None]
  - CONFUSIONAL STATE [None]
  - CONSTIPATION [None]
  - DEPRESSION [None]
  - DRUG ADMINISTRATION ERROR [None]
  - EUPHORIC MOOD [None]
  - GINGIVAL PAIN [None]
  - NAUSEA [None]
  - SLEEP DISORDER [None]
  - SUICIDAL IDEATION [None]
  - TOOTHACHE [None]
  - WEIGHT INCREASED [None]
